FAERS Safety Report 14050290 (Version 2)
Quarter: 2017Q4

REPORT INFORMATION
  Report Type: Spontaneous
  Country: US (occurrence: US)
  Receive Date: 20171005
  Receipt Date: 20171010
  Transmission Date: 20180321
  Serious: No
  Sender: FDA-Public Use
  Company Number: US-ASTRAZENECA-2017SE94475

PATIENT
  Age: 70 Year
  Sex: Male
  Weight: 158.8 kg

DRUGS (2)
  1. BYDUREON [Suspect]
     Active Substance: EXENATIDE
     Route: 058
  2. SYMBICORT [Suspect]
     Active Substance: BUDESONIDE\FORMOTEROL FUMARATE DIHYDRATE
     Indication: CHRONIC OBSTRUCTIVE PULMONARY DISEASE
     Dosage: 80/4.5 MCG 120,TWO TIMES A DAY
     Route: 055
     Dates: start: 2017

REACTIONS (8)
  - Injection site extravasation [Unknown]
  - Off label use [Unknown]
  - Device failure [Unknown]
  - Wrong technique in product usage process [Unknown]
  - Intentional device misuse [Unknown]
  - Injection site erythema [Unknown]
  - Needle track marks [Unknown]
  - Injection site nodule [Unknown]
